FAERS Safety Report 7262601-5 (Version None)
Quarter: 2011Q1

REPORT INFORMATION
  Report Type: 
  Country: None (occurrence: None)
  Receive Date: 20110130
  Receipt Date: 20100923
  Transmission Date: 20110831
  Serious: No
  Sender: FDA-Public Use
  Company Number: US-ABBOTT-10P-163-0665401-00

PATIENT
  Age: 64 Year
  Sex: Female

DRUGS (5)
  1. VICODIN [Concomitant]
     Indication: PAIN
  2. HUMIRA [Suspect]
     Indication: CROHN'S DISEASE
     Dates: start: 20100620
  3. PENTASA [Concomitant]
     Indication: CROHN'S DISEASE
  4. IMODIUM [Concomitant]
     Indication: PRODUCT USED FOR UNKNOWN INDICATION
  5. ALBUTEROL [Concomitant]
     Indication: ASTHMA

REACTIONS (3)
  - HEADACHE [None]
  - FEELING ABNORMAL [None]
  - INCREASED TENDENCY TO BRUISE [None]
